FAERS Safety Report 22648788 (Version 1)
Quarter: 2023Q2

REPORT INFORMATION
  Report Type: Other
  Country: US (occurrence: None)
  Receive Date: 20230628
  Receipt Date: 20230628
  Transmission Date: 20230722
  Serious: Yes (Disabling)
  Sender: FDA-Public Use
  Company Number: US-ROCHE-3374258

PATIENT
  Age: 50 Year
  Sex: Male
  Weight: 27.24 kg

DRUGS (13)
  1. EVRYSDI [Suspect]
     Active Substance: RISDIPLAM
     Indication: Spinal muscular atrophy
     Dosage: 0.75 MG/ML DAILY TAKEN BY G-TUBE
     Route: 048
     Dates: start: 20201203
  2. TYLENOL [Concomitant]
     Active Substance: ACETAMINOPHEN
     Indication: Pain
     Dosage: 32 MG/ML
     Route: 048
     Dates: start: 20191125
  3. ALBUTEROL SULFATE [Concomitant]
     Active Substance: ALBUTEROL SULFATE
     Indication: Wheezing
     Dosage: 1-2 PUFFS
     Route: 055
     Dates: start: 20191022
  4. ALBUTEROL SULFATE [Concomitant]
     Active Substance: ALBUTEROL SULFATE
     Indication: Dyspnoea
  5. CELEXA [Concomitant]
     Active Substance: CITALOPRAM HYDROBROMIDE
     Indication: Generalised anxiety disorder
     Route: 048
     Dates: start: 20200612
  6. GENERIC DME (UNK INGREDIENTS) [Concomitant]
     Indication: Hypoxia
     Route: 065
     Dates: start: 20180301
  7. ATROVENT [Concomitant]
     Active Substance: IPRATROPIUM BROMIDE
     Indication: Rhinorrhoea
     Dosage: 42 MCG (0.06 PERCENT)
     Route: 045
     Dates: start: 20200902
  8. NIZORAL [Concomitant]
     Active Substance: KETOCONAZOLE
     Indication: Seborrhoeic dermatitis
     Route: 061
     Dates: start: 20200213
  9. NIZORAL [Concomitant]
     Active Substance: KETOCONAZOLE
     Route: 061
     Dates: start: 20200610
  10. BACTROBAN [Concomitant]
     Active Substance: MUPIROCIN\MUPIROCIN CALCIUM
     Indication: Folliculitis
     Route: 061
     Dates: start: 20190329
  11. NUTREN [Concomitant]
     Indication: Spinal muscular atrophy
     Dates: start: 20191003
  12. ZOFRAN [Concomitant]
     Active Substance: ONDANSETRON HYDROCHLORIDE
     Indication: Nausea
     Route: 048
  13. RISDIPLAM [Concomitant]
     Active Substance: RISDIPLAM
     Indication: Spinal muscular atrophy
     Route: 048
     Dates: start: 20201005

REACTIONS (2)
  - Muscular weakness [Not Recovered/Not Resolved]
  - Limb discomfort [Not Recovered/Not Resolved]

NARRATIVE: CASE EVENT DATE: 20220601
